FAERS Safety Report 5251815-1 (Version None)
Quarter: 2007Q1

REPORT INFORMATION
  Report Type: 
  Country: None (occurrence: None)
  Receive Date: 20070223
  Receipt Date: 20070208
  Transmission Date: 20070707
  Serious: Yes (Hospitalization, Other)
  Sender: FDA-Public Use
  Company Number: PAR_1357_2007

PATIENT
  Age: 34 Year
  Sex: Female
  Weight: 76.8 kg

DRUGS (7)
  1. IBUPROFEN [Suspect]
     Indication: PAIN
     Dosage: 600 MG BID PO
     Route: 048
  2. IBUPROFEN [Suspect]
     Indication: PAIN
     Dosage: DF PRN UNK
  3. TRAMADOL HCL [Concomitant]
  4. BUTALBITAL, ACETAMINOPHEN, CAFFEINE [Concomitant]
  5. SUMATRIPTAN SUCCINATE [Concomitant]
  6. ACETAMINOPHEN [Concomitant]
  7. OXYCODONE [Concomitant]

REACTIONS (11)
  - BLOOD CHOLESTEROL INCREASED [None]
  - BLOOD PRESSURE SYSTOLIC INCREASED [None]
  - DYSPNOEA [None]
  - DYSPNOEA EXERTIONAL [None]
  - INFLAMMATION [None]
  - KIDNEY FIBROSIS [None]
  - NEPHROTIC SYNDROME [None]
  - OEDEMA PERIPHERAL [None]
  - RENAL TUBULAR ATROPHY [None]
  - SWELLING FACE [None]
  - WEIGHT INCREASED [None]
